FAERS Safety Report 12581696 (Version 2)
Quarter: 2017Q2

REPORT INFORMATION
  Report Type: Report from Study
  Country: FR (occurrence: FR)
  Receive Date: 20160722
  Receipt Date: 20170509
  Transmission Date: 20170830
  Serious: Yes (Other)
  Sender: FDA-Public Use
  Company Number: FR-ROCHE-1799271

PATIENT
  Sex: Male

DRUGS (10)
  1. RANIBIZUMAB [Suspect]
     Active Substance: RANIBIZUMAB
     Dosage: (RIGHT EYE)
     Route: 050
     Dates: start: 20150625, end: 20150625
  2. RANIBIZUMAB [Suspect]
     Active Substance: RANIBIZUMAB
     Dosage: (RIGHT EYE)
     Route: 050
     Dates: start: 20141124, end: 20141124
  3. RANIBIZUMAB [Suspect]
     Active Substance: RANIBIZUMAB
     Dosage: RIGHT EYE
     Route: 050
     Dates: start: 20160118
  4. RANIBIZUMAB [Suspect]
     Active Substance: RANIBIZUMAB
     Dosage: (RIGHT EYE)
     Route: 050
     Dates: start: 20150528
  5. RANIBIZUMAB [Suspect]
     Active Substance: RANIBIZUMAB
     Dosage: 0.5 MG, RIGHT EYE
     Route: 050
     Dates: start: 20150720
  6. RANIBIZUMAB [Suspect]
     Active Substance: RANIBIZUMAB
     Dosage: (RIGHT EYE)
     Route: 050
     Dates: start: 20150427
  7. RANIBIZUMAB [Suspect]
     Active Substance: RANIBIZUMAB
     Dosage: RIGHT EYE
     Route: 050
     Dates: start: 20151221
  8. RANIBIZUMAB [Suspect]
     Active Substance: RANIBIZUMAB
     Dosage: (RIGHT EYE)
     Route: 050
     Dates: start: 20141027
  9. RANIBIZUMAB [Suspect]
     Active Substance: RANIBIZUMAB
     Indication: RETINAL VEIN OCCLUSION
     Route: 050
     Dates: start: 20131027
  10. RANIBIZUMAB [Suspect]
     Active Substance: RANIBIZUMAB
     Dosage: (RIGHT EYE)
     Route: 050
     Dates: start: 20141222

REACTIONS (1)
  - Ocular hypertension [Recovering/Resolving]

NARRATIVE: CASE EVENT DATE: 20141219
